FAERS Safety Report 8921266 (Version 1)
Quarter: 2012Q4

REPORT INFORMATION
  Report Type: 
  Country: GB (occurrence: GB)
  Receive Date: 20121121
  Receipt Date: 20121121
  Transmission Date: 20130627
  Serious: Yes (Hospitalization)
  Sender: FDA-Public Use
  Company Number: GB-TEVA-370803ISR

PATIENT
  Age: 60 Year
  Sex: Male
  Weight: 66.98 kg

DRUGS (21)
  1. TRAMADOL [Suspect]
     Indication: BACK PAIN
     Dosage: 200 Milligram Daily;
     Route: 048
     Dates: end: 200806
  2. PARACETAMOL [Concomitant]
     Indication: PRODUCT USED FOR UNKNOWN INDICATION
     Dosage: 2000 Milligram Daily;
     Route: 048
     Dates: start: 20061114
  3. LANSOPRAZOLE [Concomitant]
     Indication: PRODUCT USED FOR UNKNOWN INDICATION
     Dosage: 30 Milligram Daily;
     Route: 048
     Dates: start: 20061114
  4. ASPIRIN [Concomitant]
     Indication: PRODUCT USED FOR UNKNOWN INDICATION
     Dosage: 75 Milligram Daily;
     Route: 048
     Dates: start: 20061114
  5. SIMVASTATIN [Concomitant]
     Indication: PRODUCT USED FOR UNKNOWN INDICATION
     Dosage: 20 Milligram Daily;
     Route: 048
     Dates: start: 20080226
  6. ALFUZOSIN [Concomitant]
     Indication: PRODUCT USED FOR UNKNOWN INDICATION
     Dosage: 10 Milligram Daily;
     Route: 048
     Dates: start: 20121114
  7. ASCORBIC ACID [Concomitant]
     Indication: PRODUCT USED FOR UNKNOWN INDICATION
     Dosage: 50 mg, 1/day
     Route: 048
     Dates: start: 20061114
  8. IRBESARTAN [Concomitant]
     Indication: PRODUCT USED FOR UNKNOWN INDICATION
     Dosage: 300 Milligram Daily;
     Route: 048
     Dates: start: 20080603
  9. LOPRAZOLAM [Concomitant]
     Indication: PRODUCT USED FOR UNKNOWN INDICATION
     Dosage: 1 Milligram Daily;
     Route: 048
     Dates: start: 20080603
  10. TESTOSTERONE [Concomitant]
     Indication: PRODUCT USED FOR UNKNOWN INDICATION
     Dosage: 1 ml, as needed
     Dates: start: 20080603
  11. LACTULOSE [Concomitant]
     Indication: PRODUCT USED FOR UNKNOWN INDICATION
     Dosage: 40 ml Daily;
     Route: 048
     Dates: start: 20061027, end: 200611
  12. MACROGOL [Concomitant]
     Indication: PRODUCT USED FOR UNKNOWN INDICATION
     Route: 048
     Dates: start: 20061027, end: 200611
  13. FUROSEMIDE [Concomitant]
     Indication: PRODUCT USED FOR UNKNOWN INDICATION
     Dosage: 20 Milligram Daily;
     Route: 048
     Dates: start: 20060911, end: 200702
  14. SALMETEROL AND FLUTICASONE [Concomitant]
     Indication: PRODUCT USED FOR UNKNOWN INDICATION
     Dosage: 4 Dosage forms Daily;
     Route: 055
     Dates: start: 20061020
  15. GAVISCON [Concomitant]
     Indication: PRODUCT USED FOR UNKNOWN INDICATION
     Route: 048
     Dates: start: 20061020
  16. BALNEUM [Concomitant]
     Indication: PRODUCT USED FOR UNKNOWN INDICATION
     Dates: start: 20061020
  17. TRIMOVATE [Concomitant]
     Indication: PRODUCT USED FOR UNKNOWN INDICATION
     Route: 061
     Dates: start: 20061020
  18. BETAMETHASONE [Concomitant]
     Indication: PRODUCT USED FOR UNKNOWN INDICATION
     Route: 061
     Dates: start: 20061114
  19. SALBUTAMOL [Concomitant]
     Indication: PRODUCT USED FOR UNKNOWN INDICATION
     Route: 055
     Dates: start: 20070611
  20. DICLOFENAC [Concomitant]
     Indication: PRODUCT USED FOR UNKNOWN INDICATION
     Dosage: 100 Milligram Daily;
     Route: 048
     Dates: start: 20070822, end: 200709
  21. NAPROXEN [Concomitant]
     Indication: PRODUCT USED FOR UNKNOWN INDICATION
     Dosage: 750 Milligram Daily;
     Route: 048
     Dates: start: 20080325

REACTIONS (15)
  - Chest pain [Unknown]
  - Coordination abnormal [Unknown]
  - Labyrinthitis [Unknown]
  - Asthma exercise induced [Not Recovered/Not Resolved]
  - Proctalgia [Unknown]
  - Cough [Unknown]
  - Fall [Unknown]
  - Inguinal hernia [Recovered/Resolved]
  - Ear discomfort [Unknown]
  - Otitis externa [Unknown]
  - Ear discomfort [Unknown]
  - Spinal osteoarthritis [Unknown]
  - Bronchitis [Unknown]
  - Pruritus [Unknown]
  - Asthma [Unknown]
